FAERS Safety Report 14133577 (Version 1)
Quarter: 2017Q4

REPORT INFORMATION
  Report Type: Spontaneous
  Country: US (occurrence: None)
  Receive Date: 20171026
  Receipt Date: 20171026
  Transmission Date: 20180321
  Serious: Yes (Life-Threatening)
  Sender: FDA-Public Use
  Company Number: None

PATIENT
  Age: 73 Year
  Sex: Male

DRUGS (2)
  1. METOPROLOL. [Suspect]
     Active Substance: METOPROLOL
     Indication: TACHYCARDIA
     Route: 042
     Dates: start: 20171019, end: 20171019
  2. METOPROLOL. [Suspect]
     Active Substance: METOPROLOL
     Indication: CHEST DISCOMFORT
     Route: 042
     Dates: start: 20171019, end: 20171019

REACTIONS (5)
  - Dyspnoea [None]
  - Bronchospasm [None]
  - Respiratory failure [None]
  - Hypoxia [None]
  - Hypercapnia [None]

NARRATIVE: CASE EVENT DATE: 20171019
